FAERS Safety Report 19628341 (Version 1)
Quarter: 2021Q3

REPORT INFORMATION
  Report Type: Spontaneous
  Country: DE (occurrence: DE)
  Receive Date: 20210728
  Receipt Date: 20210728
  Transmission Date: 20211014
  Serious: Yes (Hospitalization, Other)
  Sender: FDA-Public Use
  Company Number: DE-PFIZER INC-2021886562

PATIENT
  Age: 80 Year
  Sex: Female

DRUGS (4)
  1. VENLAFAXIN PFIZER RETARD [Suspect]
     Active Substance: VENLAFAXINE HYDROCHLORIDE
     Dosage: 75 MG, 1X/DAY (SINCE AT LEAST 2014)
     Dates: end: 20210511
  2. ZOPICLON [Interacting]
     Active Substance: ZOPICLONE
     Dosage: 7.5 MG, 1X/DAY (SINCE AT LEAST 2007)
  3. VENLAFAXIN PFIZER RETARD [Interacting]
     Active Substance: VENLAFAXINE HYDROCHLORIDE
     Dosage: 112.5 MG, 1X/DAY
     Dates: start: 20210512, end: 20210526
  4. TRAZODON [Suspect]
     Active Substance: TRAZODONE HYDROCHLORIDE
     Dosage: 100 MG, 1X/DAY (SINCE AT LEAST 2007 FOR THE TIME BEING)

REACTIONS (2)
  - Accommodation disorder [Unknown]
  - Potentiating drug interaction [Unknown]

NARRATIVE: CASE EVENT DATE: 20210514
